FAERS Safety Report 4763388-8 (Version None)
Quarter: 2005Q3

REPORT INFORMATION
  Report Type: 
  Country: None (occurrence: None)
  Receive Date: 20050908
  Receipt Date: 20050827
  Transmission Date: 20060218
  Serious: Yes (Hospitalization, Other)
  Sender: FDA-Public Use
  Company Number: AU-BRISTOL-MYERS SQUIBB COMPANY-13095500

PATIENT

DRUGS (3)
  1. REYATAZ [Suspect]
     Route: 048
  2. RITONAVIR [Concomitant]
     Route: 048
  3. TENOFOVIR [Concomitant]
     Route: 048

REACTIONS (2)
  - HYPERBILIRUBINAEMIA [None]
  - RENAL IMPAIRMENT [None]
